FAERS Safety Report 7797199-6 (Version None)
Quarter: 2011Q4

REPORT INFORMATION
  Report Type: 
  Country: None (occurrence: None)
  Receive Date: 20111005
  Receipt Date: 20110922
  Transmission Date: 20120403
  Serious: Yes (Other)
  Sender: FDA-Public Use
  Company Number: PHFR2011GB04072

PATIENT
  Sex: Female

DRUGS (2)
  1. QUETIAPINE [Concomitant]
     Dosage: 300 MG/DAY
     Route: 048
  2. CLOZAPINE [Suspect]
     Indication: SCHIZOPHRENIA
     Dosage: 125 MG/DAY
     Route: 048
     Dates: start: 20110609

REACTIONS (3)
  - AGITATION [None]
  - ELECTROCARDIOGRAM ABNORMAL [None]
  - HEART RATE INCREASED [None]
